FAERS Safety Report 25304426 (Version 1)
Quarter: 2025Q2

REPORT INFORMATION
  Report Type: Spontaneous
  Country: IT (occurrence: IT)
  Receive Date: 20250513
  Receipt Date: 20250513
  Transmission Date: 20250716
  Serious: Yes (Other)
  Sender: MYLAN
  Company Number: IT-MYLANLABS-2025M1039766

PATIENT
  Age: 77 Year
  Sex: Male

DRUGS (12)
  1. DOXORUBICIN [Suspect]
     Active Substance: DOXORUBICIN
     Indication: Rhabdomyosarcoma
     Dosage: 75 MILLIGRAM/SQ. METER, Q21D
  2. DOXORUBICIN [Suspect]
     Active Substance: DOXORUBICIN
     Indication: Oesophageal cancer metastatic
     Dosage: 75 MILLIGRAM/SQ. METER, Q21D
     Route: 065
  3. DOXORUBICIN [Suspect]
     Active Substance: DOXORUBICIN
     Dosage: 75 MILLIGRAM/SQ. METER, Q21D
     Route: 065
  4. DOXORUBICIN [Suspect]
     Active Substance: DOXORUBICIN
     Dosage: 75 MILLIGRAM/SQ. METER, Q21D
  5. GEMCITABINE [Suspect]
     Active Substance: GEMCITABINE
     Indication: Rhabdomyosarcoma
     Dosage: 1200 MILLIGRAM/SQ. METER, Q3W; ON DAYS?1 AND 8, EVERY 3?WEEKS
  6. GEMCITABINE [Suspect]
     Active Substance: GEMCITABINE
     Indication: Oesophageal cancer metastatic
     Dosage: 1200 MILLIGRAM/SQ. METER, Q3W; ON DAYS?1 AND 8, EVERY 3?WEEKS
     Route: 065
  7. GEMCITABINE [Suspect]
     Active Substance: GEMCITABINE
     Dosage: 1200 MILLIGRAM/SQ. METER, Q3W; ON DAYS?1 AND 8, EVERY 3?WEEKS
     Route: 065
  8. GEMCITABINE [Suspect]
     Active Substance: GEMCITABINE
     Dosage: 1200 MILLIGRAM/SQ. METER, Q3W; ON DAYS?1 AND 8, EVERY 3?WEEKS
  9. IFOSFAMIDE [Suspect]
     Active Substance: IFOSFAMIDE
     Indication: Rhabdomyosarcoma
     Dosage: 9?G/M? OVER 5?DAYS EVERY 21?DAYS  , Q21D
  10. IFOSFAMIDE [Suspect]
     Active Substance: IFOSFAMIDE
     Indication: Oesophageal cancer metastatic
     Dosage: 9?G/M? OVER 5?DAYS EVERY 21?DAYS  , Q21D
     Route: 065
  11. IFOSFAMIDE [Suspect]
     Active Substance: IFOSFAMIDE
     Dosage: 9?G/M? OVER 5?DAYS EVERY 21?DAYS  , Q21D
     Route: 065
  12. IFOSFAMIDE [Suspect]
     Active Substance: IFOSFAMIDE
     Dosage: 9?G/M? OVER 5?DAYS EVERY 21?DAYS  , Q21D

REACTIONS (3)
  - Drug ineffective for unapproved indication [Unknown]
  - Disease progression [Unknown]
  - Off label use [Unknown]
